FAERS Safety Report 19534662 (Version 2)
Quarter: 2021Q3

REPORT INFORMATION
  Report Type: Spontaneous
  Country: JP (occurrence: JP)
  Receive Date: 20210714
  Receipt Date: 20210806
  Transmission Date: 20211014
  Serious: Yes (Other)
  Sender: FDA-Public Use
  Company Number: JP-TAKEDA-2021TJP053085

PATIENT
  Age: 8 Decade
  Sex: Female

DRUGS (1)
  1. TRINTELLIX [Suspect]
     Active Substance: VORTIOXETINE HYDROBROMIDE
     Indication: DEPRESSION
     Dosage: UNK
     Route: 048
     Dates: start: 202106, end: 202106

REACTIONS (2)
  - Bipolar disorder [Unknown]
  - Hypomania [Recovered/Resolved]

NARRATIVE: CASE EVENT DATE: 202106
